FAERS Safety Report 11701586 (Version 1)
Quarter: 2015Q4

REPORT INFORMATION
  Report Type: Report from Study
  Country: US (occurrence: US)
  Receive Date: 20151105
  Receipt Date: 20151105
  Transmission Date: 20160304
  Serious: Yes (Death, Hospitalization)
  Sender: FDA-Public Use
  Company Number: US-AEGERION PHARMACEUTICAL INC.-AEGR001852

PATIENT

DRUGS (1)
  1. METRELEPTIN [Suspect]
     Active Substance: METRELEPTIN
     Indication: PARTIAL LIPODYSTROPHY
     Dosage: UNK
     Dates: start: 20150110, end: 20150307

REACTIONS (3)
  - Urosepsis [Fatal]
  - Encephalopathy [Fatal]
  - Mitochondrial cytopathy [Fatal]

NARRATIVE: CASE EVENT DATE: 20150311
